FAERS Safety Report 14364888 (Version 1)
Quarter: 2018Q1

REPORT INFORMATION
  Report Type: Spontaneous
  Country: JP (occurrence: JP)
  Receive Date: 20180108
  Receipt Date: 20180108
  Transmission Date: 20180509
  Serious: Yes (Other)
  Sender: FDA-Public Use
  Company Number: JP-BAUSCH-BL-2018-000026

PATIENT
  Age: 21 Year
  Sex: Male

DRUGS (2)
  1. LULICON [Suspect]
     Active Substance: LULICONAZOLE
     Indication: TINEA PEDIS
     Route: 062
     Dates: start: 20161015, end: 20161122
  2. LULICON OINTMENT [Concomitant]
     Indication: TINEA PEDIS
     Dosage: AN ADEQUATE DOSE PER DAY
     Route: 062
     Dates: start: 20161001, end: 20161015

REACTIONS (2)
  - Dermatitis contact [Recovered/Resolved]
  - Dermatitis [Recovered/Resolved]

NARRATIVE: CASE EVENT DATE: 20161116
